FAERS Safety Report 10883326 (Version 1)
Quarter: 2015Q1

REPORT INFORMATION
  Report Type: Report from Study
  Country: US (occurrence: US)
  Receive Date: 20150303
  Receipt Date: 20150303
  Transmission Date: 20150721
  Serious: Yes (Hospitalization)
  Sender: FDA-Public Use
  Company Number: US-ABBVIE-15P-163-1353518-00

PATIENT
  Sex: Female

DRUGS (4)
  1. LEVOTHYROXINE SODIUM. [Concomitant]
     Active Substance: LEVOTHYROXINE SODIUM
     Indication: THYROIDECTOMY
     Route: 065
  2. LUPRON DEPOT [Suspect]
     Active Substance: LEUPROLIDE ACETATE
     Route: 030
     Dates: start: 2006
  3. ALEVE [Concomitant]
     Active Substance: NAPROXEN SODIUM
     Indication: PRODUCT USED FOR UNKNOWN INDICATION
     Route: 065
  4. LUPRON DEPOT [Suspect]
     Active Substance: LEUPROLIDE ACETATE
     Indication: ENDOMETRIOSIS
     Route: 030
     Dates: start: 2002

REACTIONS (13)
  - Pelvic pain [Not Recovered/Not Resolved]
  - Mood swings [Recovered/Resolved]
  - Injection site pain [Recovered/Resolved]
  - Endometriosis [Not Recovered/Not Resolved]
  - Pain [Recovered/Resolved]
  - Pain [Recovered/Resolved]
  - Endometriosis [Not Recovered/Not Resolved]
  - Ovarian cyst [Unknown]
  - Injection site pain [Recovered/Resolved]
  - Basedow^s disease [Recovered/Resolved]
  - Hot flush [Recovered/Resolved]
  - Mood swings [Recovered/Resolved]
  - Hot flush [Recovered/Resolved]

NARRATIVE: CASE EVENT DATE: 2002
